FAERS Safety Report 8769423 (Version 1)
Quarter: 2012Q4

REPORT INFORMATION
  Report Type: 
  Country: US (occurrence: US)
  Receive Date: 20120905
  Receipt Date: 20120905
  Transmission Date: 20130627
  Serious: No
  Sender: FDA-Public Use
  Company Number: US-MYLANLABS-2011S1017943

PATIENT
  Age: 65 Year
  Sex: Female

DRUGS (3)
  1. SPIRONOLACTONE [Suspect]
     Indication: RENAL HYPERTENSION
     Route: 048
     Dates: start: 201104
  2. AVAPRO [Concomitant]
     Indication: BLOOD PRESSURE
     Route: 048
  3. ACTONEL [Concomitant]
     Indication: OSTEOPOROSIS
     Route: 048
     Dates: start: 2010

REACTIONS (1)
  - Hydronephrosis [Not Recovered/Not Resolved]
